FAERS Safety Report 20841203 (Version 1)
Quarter: 2022Q2

REPORT INFORMATION
  Report Type: Spontaneous
  Country: GR (occurrence: GR)
  Receive Date: 20220517
  Receipt Date: 20220517
  Transmission Date: 20220720
  Serious: Yes (Life-Threatening)
  Sender: FDA-Public Use
  Company Number: GR-Fresenius Kabi-FK202205557

PATIENT
  Age: 74 Year
  Sex: Male

DRUGS (5)
  1. AMIODARONE HYDROCHLORIDE [Suspect]
     Active Substance: AMIODARONE HYDROCHLORIDE
     Indication: Atrial fibrillation
     Route: 042
  2. AMIODARONE HYDROCHLORIDE [Suspect]
     Active Substance: AMIODARONE HYDROCHLORIDE
     Route: 042
  3. AMIODARONE HYDROCHLORIDE [Suspect]
     Active Substance: AMIODARONE HYDROCHLORIDE
     Route: 042
  4. NEOSTIGMINE [Suspect]
     Active Substance: NEOSTIGMINE
     Indication: Intestinal pseudo-obstruction
     Route: 042
  5. NEOSTIGMINE [Suspect]
     Active Substance: NEOSTIGMINE
     Route: 042

REACTIONS (2)
  - Drug interaction [Recovered/Resolved]
  - Atrioventricular block complete [Recovered/Resolved]
